FAERS Safety Report 9196008 (Version 1)
Quarter: 2013Q1

REPORT INFORMATION
  Report Type: Spontaneous
  Country: CA (occurrence: CA)
  Receive Date: 20130328
  Receipt Date: 20130328
  Transmission Date: 20140127
  Serious: Yes (Other)
  Sender: FDA-Public Use
  Company Number: CA-AMGEN-CANSP2013019418

PATIENT
  Age: 77 Year
  Sex: Female

DRUGS (1)
  1. NPLATE [Suspect]
     Indication: IDIOPATHIC THROMBOCYTOPENIC PURPURA
     Dosage: UNK
     Dates: start: 20110215

REACTIONS (3)
  - Platelet count decreased [Unknown]
  - Contusion [Unknown]
  - Limb injury [Unknown]
